FAERS Safety Report 19928767 (Version 1)
Quarter: 2021Q4

REPORT INFORMATION
  Report Type: Spontaneous
  Country: CA (occurrence: CA)
  Receive Date: 20211007
  Receipt Date: 20211007
  Transmission Date: 20220303
  Serious: Yes (Disabling)
  Sender: FDA-Public Use
  Company Number: CA-TEVA-2021-CA-1961146

PATIENT
  Age: 8 Year
  Sex: Female
  Weight: 29 kg

DRUGS (2)
  1. METHYLPHENIDATE [Suspect]
     Active Substance: METHYLPHENIDATE
     Dosage: 27 MILLIGRAM DAILY;
     Route: 048
  2. INTUNIV [Concomitant]
     Active Substance: GUANFACINE HYDROCHLORIDE

REACTIONS (4)
  - Behaviour disorder [Recovered/Resolved]
  - Learning disorder [Recovered/Resolved]
  - Therapeutic product effect variable [Recovered/Resolved]
  - Therapeutic response decreased [Recovered/Resolved]
